FAERS Safety Report 7208840-0 (Version None)
Quarter: 2010Q4

REPORT INFORMATION
  Report Type: 
  Country: None (occurrence: None)
  Receive Date: 20101222
  Receipt Date: 20090805
  Transmission Date: 20110411
  Serious: Yes (Other)
  Sender: FDA-Public Use
  Company Number: B0588793A

PATIENT
  Sex: Female

DRUGS (2)
  1. DIGOXIN [Suspect]
     Indication: ABORTION INDUCED
     Dosage: 1.5 MG /SINGLE DOSE /
  2. MISOPROSTOL [Suspect]
     Indication: ABORTION INDUCED
     Dosage: 400 MG /SINGLE DOSE / TRANSBUCCAL
     Route: 002

REACTIONS (4)
  - ABORTION INDUCED [None]
  - DRUG EXPOSURE DURING PREGNANCY [None]
  - INTRA-UTERINE DEATH [None]
  - OLIGOHYDRAMNIOS [None]
